FAERS Safety Report 13753326 (Version 1)
Quarter: 2017Q3

REPORT INFORMATION
  Report Type: Report from Study
  Country: None (occurrence: US)
  Receive Date: 20170714
  Receipt Date: 20170714
  Transmission Date: 20171127
  Serious: Yes (Hospitalization)
  Sender: FDA-Public Use
  Company Number: US-IPSEN BIOPHARMACEUTICALS, INC.-2012-7877

PATIENT
  Age: 5 Year
  Sex: Male
  Weight: 25 kg

DRUGS (8)
  1. INCRELEX [Suspect]
     Active Substance: MECASERMIN
     Route: 058
     Dates: start: 20100930, end: 20110202
  2. INCRELEX [Suspect]
     Active Substance: MECASERMIN
     Route: 058
     Dates: start: 20090818
  3. PREVACID [Concomitant]
     Active Substance: LANSOPRAZOLE
     Indication: VOMITING
     Route: 065
  4. INCRELEX [Suspect]
     Active Substance: MECASERMIN
     Indication: PRIMARY INSULIN LIKE GROWTH FACTOR-1 DEFICIENCY
     Route: 058
     Dates: start: 20110203
  5. INCRELEX [Suspect]
     Active Substance: MECASERMIN
     Route: 058
     Dates: start: 20100518, end: 20100929
  6. INCRELEX [Suspect]
     Active Substance: MECASERMIN
     Route: 058
     Dates: start: 20090818, end: 20100328
  7. INCRELEX [Suspect]
     Active Substance: MECASERMIN
     Route: 058
     Dates: start: 20081212
  8. INCRELEX [Suspect]
     Active Substance: MECASERMIN
     Route: 058
     Dates: start: 20090504

REACTIONS (3)
  - Adenoidal hypertrophy [None]
  - Tonsillar hypertrophy [None]
  - Drug dose omission [Unknown]

NARRATIVE: CASE EVENT DATE: 20100329
